FAERS Safety Report 16847705 (Version 2)
Quarter: 2020Q1

REPORT INFORMATION
  Report Type: Other
  Country: US (occurrence: US)
  Receive Date: 20190924
  Receipt Date: 20200324
  Transmission Date: 20200409
  Serious: No
  Sender: FDA-Public Use
  Company Number: US-ACORDA-ACO_159897_2019

PATIENT
  Age: 65 Year
  Sex: Male
  Weight: 60.77 kg

DRUGS (4)
  1. STALEVO [Concomitant]
     Active Substance: CARBIDOPA\ENTACAPONE\LEVODOPA
     Indication: PRODUCT USED FOR UNKNOWN INDICATION
     Dosage: UNK
     Route: 065
  2. INBRIJA [Suspect]
     Active Substance: LEVODOPA
     Indication: ON AND OFF PHENOMENON
     Dosage: UNK
     Dates: start: 20200223
  3. INBRIJA [Suspect]
     Active Substance: LEVODOPA
     Indication: PARKINSON^S DISEASE
     Dosage: 84 MILLIGRAM (2 CAPSULES OF 42MG) UP TO FIVE TIMES PER DAY AS NEEDED
     Dates: start: 201904
  4. LEVODOPA [Concomitant]
     Active Substance: LEVODOPA
     Indication: PRODUCT USED FOR UNKNOWN INDICATION
     Dosage: UNK
     Route: 048

REACTIONS (8)
  - Kidney infection [Unknown]
  - Dyskinesia [Unknown]
  - Incorrect dose administered [Unknown]
  - Therapy cessation [Recovered/Resolved]
  - Tremor [Unknown]
  - Wrong technique in product usage process [Unknown]
  - Nephrolithiasis [Unknown]
  - Therapy cessation [Unknown]

NARRATIVE: CASE EVENT DATE: 20190616
